FAERS Safety Report 10632377 (Version 1)
Quarter: 2014Q4

REPORT INFORMATION
  Report Type: Spontaneous
  Country: US (occurrence: US)
  Receive Date: 20141205
  Receipt Date: 20141205
  Transmission Date: 20150529
  Serious: No
  Sender: FDA-Public Use
  Company Number: US-BRISTOL-MYERS SQUIBB COMPANY-21248729

PATIENT
  Age: 17 Year
  Sex: Male
  Weight: 81.63 kg

DRUGS (5)
  1. FOLIC ACID. [Concomitant]
     Active Substance: FOLIC ACID
  2. ORENCIA [Suspect]
     Active Substance: ABATACEPT
     Indication: RHEUMATOID ARTHRITIS
     Dosage: INTERRUPTED ON:2014
     Route: 058
     Dates: start: 2014
  3. OXYCONTIN [Concomitant]
     Active Substance: OXYCODONE HYDROCHLORIDE
  4. METHOTREXATE [Concomitant]
     Active Substance: METHOTREXATE
  5. PREDNISONE. [Concomitant]
     Active Substance: PREDNISONE

REACTIONS (6)
  - Vomiting [Unknown]
  - Pain [Unknown]
  - Nausea [Unknown]
  - Blood urine present [Unknown]
  - Dyspepsia [Unknown]
  - Hot flush [Unknown]

NARRATIVE: CASE EVENT DATE: 2014
